FAERS Safety Report 23178277 (Version 1)
Quarter: 2023Q4

REPORT INFORMATION
  Report Type: Report from Study
  Country: AU (occurrence: AU)
  Receive Date: 20231113
  Receipt Date: 20231113
  Transmission Date: 20240109
  Serious: Yes (Other)
  Sender: FDA-Public Use
  Company Number: AU-002147023-NVSC2023AU161638

PATIENT
  Age: 44 Year
  Sex: Female

DRUGS (1)
  1. KESIMPTA [Suspect]
     Active Substance: OFATUMUMAB
     Indication: Relapsing-remitting multiple sclerosis
     Dosage: 20 MG, QMO
     Route: 058
     Dates: start: 20230622

REACTIONS (8)
  - Multiple sclerosis [Unknown]
  - Condition aggravated [Unknown]
  - Vision blurred [Unknown]
  - Back pain [Unknown]
  - Limb discomfort [Unknown]
  - Dizziness [Unknown]
  - Dysphagia [Unknown]
  - Chest pain [Unknown]

NARRATIVE: CASE EVENT DATE: 20230720
